FAERS Safety Report 18656509 (Version 1)
Quarter: 2020Q4

REPORT INFORMATION
  Report Type: Spontaneous
  Country: DE (occurrence: DE)
  Receive Date: 20201223
  Receipt Date: 20201223
  Transmission Date: 20210114
  Serious: Yes (Other)
  Sender: FDA-Public Use
  Company Number: DE-SA-2020SA362277

PATIENT

DRUGS (44)
  1. DICLOFENAC [Concomitant]
     Active Substance: DICLOFENAC
     Indication: PRODUCT USED FOR UNKNOWN INDICATION
     Dosage: 1 ML, 1X
     Route: 014
     Dates: start: 20181016, end: 20181016
  2. DEXAMETHASONE SALT NOT SPECIFIED [Suspect]
     Active Substance: DEXAMETHASONE
     Dosage: 1 DF, 1X
     Route: 014
     Dates: start: 20181130, end: 20181130
  3. PREDNISOLONE. [Suspect]
     Active Substance: PREDNISOLONE
     Dosage: 30X 20 MG
     Route: 048
     Dates: start: 20181204, end: 20181215
  4. LIPOTALON [Suspect]
     Active Substance: DEXAMETHASONE PALMITATE
     Indication: EPICONDYLITIS
     Dosage: 1 DOSAGE FORM, SINGLE; LEFT ELBOW
     Route: 014
     Dates: start: 20181019, end: 20181019
  5. MEAVERIN [MEPIVACAINE HYDROCHLORIDE] [Concomitant]
     Active Substance: MEPIVACAINE HYDROCHLORIDE
     Dosage: 1 DOSAGE FORM, SINGLE; RIGHT KNEE AND FOOT
     Route: 014
     Dates: start: 20181113, end: 20181113
  6. DICLOFENAC [Concomitant]
     Active Substance: DICLOFENAC
     Dosage: 1 ML, 1X
     Route: 014
     Dates: start: 20181106, end: 20181106
  7. DICLOFENAC [Concomitant]
     Active Substance: DICLOFENAC
     Dosage: 1 ML, 1X
     Route: 014
     Dates: start: 20181130, end: 20181130
  8. DICLOFENAC [Concomitant]
     Active Substance: DICLOFENAC
     Dosage: 1 ML, 1X
     Route: 014
     Dates: start: 20181102, end: 20181102
  9. DEXAMETHASONE SALT NOT SPECIFIED [Suspect]
     Active Substance: DEXAMETHASONE
     Dosage: 1 DF, 1X
     Route: 014
     Dates: start: 20181113, end: 20181113
  10. DEXAMETHASONE SALT NOT SPECIFIED [Suspect]
     Active Substance: DEXAMETHASONE
     Dosage: 1 DF, 1X
     Route: 014
     Dates: start: 20181127, end: 20181127
  11. HYALURON [HYALURONATE SODIUM] [Concomitant]
     Dosage: 1 DOSAGE FORM, SINGLE; RIGHT KNEE
     Route: 014
     Dates: start: 20181127, end: 20181127
  12. MEAVERIN [MEPIVACAINE HYDROCHLORIDE] [Concomitant]
     Active Substance: MEPIVACAINE HYDROCHLORIDE
     Dosage: 1 DOSAGE FORM, SINGLE; LEFT ELBOW
     Route: 014
     Dates: start: 20181019, end: 20181019
  13. DEXAMETHASONE SALT NOT SPECIFIED [Suspect]
     Active Substance: DEXAMETHASONE
     Indication: EPICONDYLITIS
     Dosage: 1 DF, 1X
     Route: 014
     Dates: start: 20181019, end: 20181019
  14. DEXAMETHASONE SALT NOT SPECIFIED [Suspect]
     Active Substance: DEXAMETHASONE
     Dosage: 1 DF, 1X
     Route: 014
     Dates: start: 20181106, end: 20181106
  15. PREDNISOLONE. [Suspect]
     Active Substance: PREDNISOLONE
     Indication: ARTHRALGIA
     Dosage: 20 MG, QD
     Route: 048
     Dates: start: 2018
  16. PREDNISOLONE. [Suspect]
     Active Substance: PREDNISOLONE
     Indication: EPICONDYLITIS
     Dosage: 20 MG, TID
     Route: 048
     Dates: start: 201810
  17. PREDNISOLONE. [Suspect]
     Active Substance: PREDNISOLONE
     Dosage: 20 MG, BID
     Route: 048
     Dates: start: 201810
  18. LIPOTALON [Suspect]
     Active Substance: DEXAMETHASONE PALMITATE
     Dosage: 1 DOSAGE FORM, SINGLE; RIGHT KNEE AND FOOT
     Route: 014
     Dates: start: 20181113, end: 20181113
  19. LIPOTALON [Suspect]
     Active Substance: DEXAMETHASONE PALMITATE
     Dosage: 1 DOSAGE FORM, SINGLE; BOTH KNEES AND FOOT
     Route: 014
     Dates: start: 20181127, end: 20181127
  20. HYALURON [HYALURONATE SODIUM] [Concomitant]
     Dosage: 1 DOSAGE FORM, SINGLE; RIGHT KNEE
     Route: 014
     Dates: start: 20181120, end: 20181120
  21. MEAVERIN [MEPIVACAINE HYDROCHLORIDE] [Concomitant]
     Active Substance: MEPIVACAINE HYDROCHLORIDE
     Dosage: 1 DOSAGE FORM, SINGLE; LEFT KNEE
     Route: 014
     Dates: start: 20181130, end: 20181130
  22. DICLOFENAC [Concomitant]
     Active Substance: DICLOFENAC
     Dosage: 1 ML, 1X
     Route: 014
     Dates: start: 20181019, end: 20181019
  23. TRIAMCINOLONE ACETONIDE. [Suspect]
     Active Substance: TRIAMCINOLONE ACETONIDE
     Indication: INTERVERTEBRAL DISC PROTRUSION
     Dosage: INJECTION THERAPY WITH 4 TRIAMCINOLONE INJECTIONS UNDER ULTRASOUND CONTROL BECAUSE OF A HERNIATED DI
     Dates: start: 2020
  24. DEXAMETHASONE SALT NOT SPECIFIED [Suspect]
     Active Substance: DEXAMETHASONE
     Indication: ARTHRALGIA
     Dosage: 1 DF, 1X
     Route: 014
     Dates: start: 20181016, end: 20181016
  25. LIPOTALON [Suspect]
     Active Substance: DEXAMETHASONE PALMITATE
     Dosage: 1 DOSAGE FORM, SINGLE; LEFT KNEE
     Route: 014
     Dates: start: 20181130, end: 20181130
  26. MEAVERIN [MEPIVACAINE HYDROCHLORIDE] [Concomitant]
     Active Substance: MEPIVACAINE HYDROCHLORIDE
     Dosage: 1 DOSAGE FORM, SINGLE; RIGHT KNEE AND FOOT
     Route: 014
     Dates: start: 20181120, end: 20181120
  27. MEAVERIN [MEPIVACAINE HYDROCHLORIDE] [Concomitant]
     Active Substance: MEPIVACAINE HYDROCHLORIDE
     Dosage: 1 DOSAGE FORM, SINGLE; BOTH KNEES AND FOOT
     Route: 014
     Dates: start: 20181127, end: 20181127
  28. MEAVERIN [MEPIVACAINE HYDROCHLORIDE] [Concomitant]
     Active Substance: MEPIVACAINE HYDROCHLORIDE
     Dosage: 1 DOSAGE FORM, SINGLE; RIGHT KNEE
     Route: 014
     Dates: start: 20181102, end: 20181102
  29. MEAVERIN [MEPIVACAINE HYDROCHLORIDE] [Concomitant]
     Active Substance: MEPIVACAINE HYDROCHLORIDE
     Dosage: 1 DOSAGE FORM, SINGLE; BOTH KNEES AND FOOT
     Route: 014
     Dates: start: 20181204, end: 20181204
  30. MEAVERIN [MEPIVACAINE HYDROCHLORIDE] [Concomitant]
     Active Substance: MEPIVACAINE HYDROCHLORIDE
     Dosage: 1 DOSAGE FORM, SINGLE; RIGHT KNEE
     Route: 014
     Dates: start: 20181106, end: 20181106
  31. DEXAMETHASONE SALT NOT SPECIFIED [Suspect]
     Active Substance: DEXAMETHASONE
     Dosage: 1 DF, 1X
     Route: 014
     Dates: start: 20181102, end: 20181102
  32. LIPOTALON [Suspect]
     Active Substance: DEXAMETHASONE PALMITATE
     Indication: ARTHRALGIA
     Dosage: 1 DOSAGE FORM, SINGLE; LEFT ELBOW
     Route: 014
     Dates: start: 20181016, end: 20181016
  33. LIPOTALON [Suspect]
     Active Substance: DEXAMETHASONE PALMITATE
     Dosage: 1 DOSAGE FORM, SINGLE; RIGHT KNEE AND FOOT
     Route: 014
     Dates: start: 20181120, end: 20181120
  34. HYALURON [HYALURONATE SODIUM] [Concomitant]
     Dosage: 1 DOSAGE FORM, SINGLE; RIGHT KNEE
     Route: 014
     Dates: start: 20181113, end: 20181113
  35. DICLOFENAC [Concomitant]
     Active Substance: DICLOFENAC
     Dosage: 1 ML, 1X
     Route: 014
     Dates: start: 20181113, end: 20181113
  36. DEXAMETHASONE SALT NOT SPECIFIED [Suspect]
     Active Substance: DEXAMETHASONE
     Dosage: 1 DF, 1X
     Route: 014
     Dates: start: 20181120, end: 20181120
  37. LIPOTALON [Suspect]
     Active Substance: DEXAMETHASONE PALMITATE
     Dosage: 1 DOSAGE FORM, SINGLE; RIGHT KNEE
     Route: 014
     Dates: start: 20181106, end: 20181106
  38. LIPOTALON [Suspect]
     Active Substance: DEXAMETHASONE PALMITATE
     Dosage: 1 DOSAGE FORM, SINGLE; BOTH KNEES AND FOOT
     Route: 014
     Dates: start: 20181204, end: 20181204
  39. MEAVERIN [MEPIVACAINE HYDROCHLORIDE] [Concomitant]
     Active Substance: MEPIVACAINE HYDROCHLORIDE
     Indication: PRODUCT USED FOR UNKNOWN INDICATION
     Dosage: 1 DOSAGE FORM, SINGLE; LEFT ELBOW
     Route: 014
     Dates: start: 20181016, end: 20181016
  40. DICLOFENAC [Concomitant]
     Active Substance: DICLOFENAC
     Dosage: 1 ML, 1X
     Route: 014
     Dates: start: 20181127, end: 20181127
  41. DICLOFENAC [Concomitant]
     Active Substance: DICLOFENAC
     Dosage: 1 ML, 1X
     Route: 014
     Dates: start: 20181120, end: 20181120
  42. LIPOTALON [Suspect]
     Active Substance: DEXAMETHASONE PALMITATE
     Dosage: 1 DOSAGE FORM, SINGLE; RIGHT KNEE
     Route: 014
     Dates: start: 20181102, end: 20181102
  43. HYALURON [HYALURONATE SODIUM] [Concomitant]
     Indication: PRODUCT USED FOR UNKNOWN INDICATION
     Dosage: 1 DOSAGE FORM, SINGLE; RIGHT KNEE
     Route: 014
     Dates: start: 20181106, end: 20181106
  44. HYALURON [HYALURONATE SODIUM] [Concomitant]
     Dosage: 1 DOSAGE FORM, SINGLE; BOTH KNEES
     Route: 014
     Dates: start: 20181204, end: 20181204

REACTIONS (20)
  - Influenza like illness [Not Recovered/Not Resolved]
  - Dermatitis allergic [Not Recovered/Not Resolved]
  - Emphysema [Not Recovered/Not Resolved]
  - Inappropriate schedule of product administration [Unknown]
  - Sleep disorder [Not Recovered/Not Resolved]
  - Nausea [Recovered/Resolved]
  - Cystocele [Not Recovered/Not Resolved]
  - Disturbance in attention [Not Recovered/Not Resolved]
  - Cushing^s syndrome [Not Recovered/Not Resolved]
  - Blood pressure increased [Not Recovered/Not Resolved]
  - Fluid retention [Not Recovered/Not Resolved]
  - Muscular weakness [Not Recovered/Not Resolved]
  - Joint instability [Not Recovered/Not Resolved]
  - Balance disorder [Not Recovered/Not Resolved]
  - Hallucination [Not Recovered/Not Resolved]
  - Application site pain [Not Recovered/Not Resolved]
  - Arthralgia [Not Recovered/Not Resolved]
  - Blood glucose increased [Not Recovered/Not Resolved]
  - Pelvic floor muscle weakness [Not Recovered/Not Resolved]
  - Pyrexia [Not Recovered/Not Resolved]

NARRATIVE: CASE EVENT DATE: 2018
